FAERS Safety Report 4508217-2 (Version None)
Quarter: 2004Q4

REPORT INFORMATION
  Report Type: 
  Country: None (occurrence: None)
  Receive Date: 20041123
  Receipt Date: 20031118
  Transmission Date: 20050328
  Serious: No
  Sender: FDA-Public Use
  Company Number: US-GLAXOSMITHKLINE-A0440184A

PATIENT
  Age: 56 Year
  Sex: Female

DRUGS (2)
  1. WELLBUTRIN [Suspect]
     Dosage: 200MG TWICE PER DAY
     Route: 048
     Dates: start: 19950101
  2. PREMARIN [Concomitant]

REACTIONS (1)
  - BLOOD PRESSURE INCREASED [None]
